FAERS Safety Report 24307198 (Version 1)
Quarter: 2024Q3

REPORT INFORMATION
  Report Type: Spontaneous
  Country: US (occurrence: US)
  Receive Date: 20240911
  Receipt Date: 20240911
  Transmission Date: 20241016
  Serious: Yes (Other)
  Sender: BLUEPRINT MEDICINES
  Company Number: US-BLUEPRINT MEDICINES CORPORATION-2024BUS004481

PATIENT

DRUGS (2)
  1. GAVRETO [Suspect]
     Active Substance: PRALSETINIB
     Indication: Lung neoplasm malignant
     Dosage: 400 MILLIGRAM, QD
     Route: 048
     Dates: start: 20230110
  2. GAVRETO [Suspect]
     Active Substance: PRALSETINIB
     Dosage: 400 MILLIGRAM, QD
     Route: 048
     Dates: start: 20240726

REACTIONS (4)
  - Erectile dysfunction [Unknown]
  - Rash [Unknown]
  - Abdominal pain upper [Recovered/Resolved]
  - Inappropriate schedule of product administration [Unknown]

NARRATIVE: CASE EVENT DATE: 20240726
